FAERS Safety Report 4924773-4 (Version None)
Quarter: 2006Q1

REPORT INFORMATION
  Report Type: 
  Country: None (occurrence: None)
  Receive Date: 20060127
  Receipt Date: 20051224
  Transmission Date: 20060701
  Serious: Yes (Other)
  Sender: FDA-Public Use
  Company Number: 2006001061

PATIENT
  Age: 49 Year
  Sex: Male
  Weight: 90.7194 kg

DRUGS (4)
  1. LYRICA [Suspect]
     Indication: NEURALGIA
     Dosage: 150 MG (50 MG, 3 IN 1 D)
     Dates: start: 20051101, end: 20051218
  2. OXYCONTIN [Suspect]
     Indication: NEURALGIA
     Dosage: DAILY
     Dates: end: 20051218
  3. LOTREL [Concomitant]
  4. XANAX [Concomitant]

REACTIONS (5)
  - DRUG INEFFECTIVE [None]
  - DRUG INTERACTION [None]
  - INSOMNIA [None]
  - PAIN IN EXTREMITY [None]
  - RETCHING [None]
